FAERS Safety Report 6164525-3 (Version None)
Quarter: 2009Q2

REPORT INFORMATION
  Report Type: 
  Country: None (occurrence: None)
  Receive Date: 20090421
  Receipt Date: 20090416
  Transmission Date: 20091009
  Serious: Yes (Death)
  Sender: FDA-Public Use
  Company Number: GXKR2009DE04671

PATIENT
  Age: 75 Year
  Sex: Male
  Weight: 79.8 kg

DRUGS (6)
  1. SOTAHEXAL (NGX) (SOTALOL) TABLET, 80MG [Suspect]
     Indication: ARRHYTHMIA
     Dosage: 80 MG, TID, ORAL
     Route: 048
     Dates: end: 20090313
  2. LEPONEX ^WANDER^ (CLOZAPINE) 25MG [Suspect]
     Indication: AGGRESSION
     Dosage: 25 MG, ONCE/SINGLE, ORAL
     Route: 048
  3. LEPONEX ^WANDER^ (CLOZAPINE) 25MG [Suspect]
     Indication: CONFUSIONAL STATE
     Dosage: 25 MG, ONCE/SINGLE, ORAL
     Route: 048
  4. LEPONEX ^WANDER^ (CLOZAPINE) 25MG [Suspect]
     Indication: HALLUCINATION
     Dosage: 25 MG, ONCE/SINGLE, ORAL
     Route: 048
  5. NACOM ^DUPONT PHARMA^ (CARBIDOPA, LEVODOPA) [Concomitant]
  6. RISPERIDONE [Concomitant]

REACTIONS (3)
  - CARDIAC FAILURE ACUTE [None]
  - DRUG INTERACTION [None]
  - SHOCK [None]
